FAERS Safety Report 7078140-0 (Version None)
Quarter: 2010Q4

REPORT INFORMATION
  Report Type: 
  Country: None (occurrence: None)
  Receive Date: 20101102
  Receipt Date: 20101019
  Transmission Date: 20110411
  Serious: Yes (Other)
  Sender: FDA-Public Use
  Company Number: HR-PAR PHARMACEUTICAL, INC-2010SCPR002257

PATIENT
  Age: 49 Year
  Sex: Female

DRUGS (5)
  1. RISPERIDONE [Suspect]
     Indication: SCHIZOPHRENIA
     Dosage: 3 MG, IN EVENING
     Route: 065
     Dates: start: 20020101
  2. SULPIRIDE [Interacting]
     Indication: SCHIZOPHRENIA
     Dosage: 400MG, DIVIDED IN TWO DOSES
     Route: 065
     Dates: start: 20020101
  3. OTHER HYPNOTICS [Concomitant]
     Indication: SCHIZOPHRENIA
     Dosage: UNK , UNK
     Route: 065
     Dates: start: 20020101
  4. ANXIOLYTICS [Concomitant]
     Indication: SCHIZOPHRENIA
     Dosage: UNK
     Route: 065
     Dates: start: 20020101
  5. SELECTIVE SEROTONIN REUPTAKE INHIBITORS [Concomitant]
     Indication: SCHIZOPHRENIA
     Dosage: UNK
     Route: 065
     Dates: start: 20020101

REACTIONS (4)
  - AMENORRHOEA [None]
  - BLOOD PROLACTIN INCREASED [None]
  - DRUG INTERACTION [None]
  - HYPERPROLACTINAEMIA [None]
